FAERS Safety Report 7469725-8 (Version None)
Quarter: 2011Q2

REPORT INFORMATION
  Report Type: 
  Country: None (occurrence: None)
  Receive Date: 20110510
  Receipt Date: 20110422
  Transmission Date: 20111010
  Serious: No
  Sender: FDA-Public Use
  Company Number: US-B.I. PHARMACEUTICALS,INC./RIDGEFIELD-2011-BP-11528BP

PATIENT
  Sex: Female

DRUGS (9)
  1. BUMEX [Concomitant]
  2. LANTUS [Concomitant]
  3. PROTONIX [Concomitant]
  4. ADVAIR DISKUS 100/50 [Concomitant]
  5. COMBIVENT [Concomitant]
  6. METFORMIN HCL [Concomitant]
  7. PRADAXA [Suspect]
     Indication: ATRIAL FIBRILLATION
     Dosage: 300 MG
     Route: 048
     Dates: start: 20110418
  8. LISINOPRIL [Concomitant]
  9. ALDACTONE [Concomitant]

REACTIONS (5)
  - TINNITUS [None]
  - DECREASED APPETITE [None]
  - EPISTAXIS [None]
  - FATIGUE [None]
  - OCULAR HYPERAEMIA [None]
